FAERS Safety Report 7442396-2 (Version None)
Quarter: 2011Q2

REPORT INFORMATION
  Report Type: 
  Country: None (occurrence: None)
  Receive Date: 20110428
  Receipt Date: 20110420
  Transmission Date: 20111010
  Serious: Yes (Other)
  Sender: FDA-Public Use
  Company Number: JP-ROCHE-764519

PATIENT
  Sex: Female
  Weight: 50 kg

DRUGS (8)
  1. CARBOPLATIN [Concomitant]
     Route: 041
     Dates: start: 20110118, end: 20110118
  2. PACLITAXEL [Concomitant]
     Route: 041
     Dates: start: 20101118, end: 20101209
  3. PACLITAXEL [Concomitant]
     Route: 041
     Dates: start: 20110118, end: 20110118
  4. ZOMETA [Concomitant]
     Route: 041
     Dates: start: 20110127, end: 20110127
  5. TAKEPRON [Concomitant]
     Route: 048
     Dates: start: 20101101
  6. ZOMETA [Concomitant]
     Route: 041
     Dates: start: 20110217, end: 20110217
  7. AVASTIN [Suspect]
     Indication: NON-SMALL CELL LUNG CANCER
     Route: 041
     Dates: start: 20101118
  8. CARBOPLATIN [Concomitant]
     Route: 041
     Dates: start: 20101118, end: 20101209

REACTIONS (4)
  - FEBRILE NEUTROPENIA [None]
  - HYPOAESTHESIA [None]
  - WHITE BLOOD CELL COUNT DECREASED [None]
  - PANCREATITIS ACUTE [None]
